FAERS Safety Report 14674792 (Version 1)
Quarter: 2018Q1

REPORT INFORMATION
  Report Type: Spontaneous
  Country: FR (occurrence: None)
  Receive Date: 20180314
  Receipt Date: 20180314
  Transmission Date: 20180509
  Serious: Yes (Other)
  Sender: FDA-Public Use
  Company Number: FK201802754

PATIENT
  Age: 74 Year
  Sex: Male

DRUGS (5)
  1. DAUNORUBICIN(DAUNORUBICIN)(DAUNORUBICIN) [Suspect]
     Active Substance: DAUNORUBICIN
     Indication: KAPOSI^S SARCOMA
  2. IMIQUIMOD(IMIQUIMOD)(IMIQUIMOD) [Suspect]
     Active Substance: IMIQUIMOD
     Indication: KAPOSI^S SARCOMA
  3. PACLITAXEL (MANUFACTURER UNKNOWN)(PACLITAXEL)(PACLITAXEL) [Suspect]
     Active Substance: PACLITAXEL
     Indication: KAPOSI^S SARCOMA
  4. INTERFERON(INTERFERON)(INTERFERON) [Suspect]
     Active Substance: INTERFERON
     Indication: KAPOSI^S SARCOMA
  5. VINBLASTINE(VINBLASTINE)(VINBLASTINE) [Suspect]
     Active Substance: VINBLASTINE
     Indication: KAPOSI^S SARCOMA

REACTIONS (8)
  - Muscle mass [None]
  - Lymphoedema [None]
  - Malignant transformation [None]
  - Kaposi^s sarcoma [None]
  - Bone erosion [None]
  - Human herpes virus 8 test positive [None]
  - General physical health deterioration [None]
  - Lymphadenopathy [None]
